FAERS Safety Report 7101888-6 (Version None)
Quarter: 2010Q4

REPORT INFORMATION
  Report Type: 
  Country: None (occurrence: None)
  Receive Date: 20101108
  Receipt Date: 20101027
  Transmission Date: 20110411
  Serious: Yes (Hospitalization)
  Sender: FDA-Public Use
  Company Number: TCI2009A03743

PATIENT
  Age: 68 Year
  Sex: Female

DRUGS (1)
  1. TAKEPRON OD TABLETS 30 (LANSOPRAZOLE) [Suspect]
     Indication: GASTRITIS
     Dosage: 30 MG (30 MG, 1 IN 1 D), ORAL
     Route: 048
     Dates: start: 20080901, end: 20090909

REACTIONS (5)
  - COLITIS COLLAGENOUS [None]
  - DIARRHOEA [None]
  - HYPOPROTEINAEMIA [None]
  - LARGE INTESTINAL ULCER [None]
  - OEDEMA PERIPHERAL [None]
